FAERS Safety Report 17879778 (Version 3)
Quarter: 2024Q1

REPORT INFORMATION
  Report Type: Spontaneous
  Country: US (occurrence: US)
  Receive Date: 20200610
  Receipt Date: 20240221
  Transmission Date: 20240410
  Serious: Yes (Death)
  Sender: FDA-Public Use
  Company Number: US-PFIZER INC-2020224694

PATIENT
  Age: 87 Year
  Sex: Male

DRUGS (1)
  1. VYNDAMAX [Suspect]
     Active Substance: TAFAMIDIS
     Indication: Acquired ATTR amyloidosis
     Dosage: 61 MG, 1X/DAY (EVERY MORNING)

REACTIONS (8)
  - Cardiac failure congestive [Fatal]
  - Atrial fibrillation [Fatal]
  - Fall [Fatal]
  - Head injury [Fatal]
  - Renal disorder [Fatal]
  - Abdominal distension [Unknown]
  - Nausea [Unknown]
  - Insomnia [Unknown]
